FAERS Safety Report 7580477-3 (Version None)
Quarter: 2011Q2

REPORT INFORMATION
  Report Type: 
  Country: None (occurrence: None)
  Receive Date: 20110629
  Receipt Date: 20110608
  Transmission Date: 20111010
  Serious: Yes (Congenital Anomaly)
  Sender: FDA-Public Use
  Company Number: A0924478A

PATIENT
  Sex: Male

DRUGS (12)
  1. SYNTHROID [Concomitant]
     Route: 064
  2. ZITHROMAX [Concomitant]
     Route: 064
  3. PRENATAL VITAMINS [Concomitant]
     Route: 064
  4. ALDACTONE [Concomitant]
     Route: 064
  5. PAXIL [Suspect]
     Route: 064
     Dates: start: 20040316, end: 20050425
  6. AMOXIL [Concomitant]
     Route: 064
  7. NEXIUM [Concomitant]
     Route: 064
  8. LOVENOX [Concomitant]
     Route: 064
  9. MACROBID [Concomitant]
     Route: 064
  10. PROTONIX [Concomitant]
     Route: 064
  11. LITHIUM CARBONATE [Concomitant]
     Route: 064
  12. COUMADIN [Concomitant]
     Route: 064

REACTIONS (3)
  - CARDIAC MURMUR [None]
  - DRUG EXPOSURE DURING PREGNANCY [None]
  - FAILURE TO THRIVE [None]
